FAERS Safety Report 9941000 (Version 4)
Quarter: 2014Q2

REPORT INFORMATION
  Report Type: Spontaneous
  Country: US (occurrence: US)
  Receive Date: 20140303
  Receipt Date: 20140415
  Transmission Date: 20141212
  Serious: Yes (Hospitalization, Other)
  Sender: FDA-Public Use
  Company Number: US-JNJFOC-20140300418

PATIENT
  Age: 49 Year
  Sex: Male

DRUGS (7)
  1. XARELTO [Suspect]
     Indication: CEREBROVASCULAR ACCIDENT PROPHYLAXIS
     Route: 048
     Dates: start: 201312
  2. XARELTO [Suspect]
     Indication: ATRIAL FIBRILLATION
     Route: 048
     Dates: start: 201312
  3. PREDNISONE [Concomitant]
     Route: 065
  4. DIOVAN [Concomitant]
     Route: 065
     Dates: start: 20130613, end: 201402
  5. LASIX [Concomitant]
     Route: 065
     Dates: start: 20130613
  6. CARVEDILOL [Concomitant]
     Route: 065
     Dates: start: 20130613, end: 201402
  7. ALLOPURINOL [Concomitant]
     Route: 065

REACTIONS (10)
  - Renal impairment [Unknown]
  - Jaundice [Recovering/Resolving]
  - Thrombocytopenia [Recovering/Resolving]
  - Hepatitis [Recovering/Resolving]
  - Cardiac failure [Unknown]
  - Blood disorder [Unknown]
  - Ecchymosis [Recovering/Resolving]
  - Rash pruritic [Recovering/Resolving]
  - Fatigue [Unknown]
  - Contusion [Recovering/Resolving]
